FAERS Safety Report 7351947-8 (Version None)
Quarter: 2011Q1

REPORT INFORMATION
  Report Type: 
  Country: None (occurrence: None)
  Receive Date: 20110310
  Receipt Date: 20110310
  Transmission Date: 20110831
  Serious: Yes (Death)
  Sender: FDA-Public Use
  Company Number: None

PATIENT
  Sex: Female
  Weight: 57.1532 kg

DRUGS (2)
  1. EFFEXOR [Suspect]
     Dosage: 75 MG. THEN 37.5 MG.
     Dates: start: 20100124
  2. EFFEXOR [Suspect]
     Dosage: 75 MG. THEN 37.5 MG.
     Dates: start: 20101202

REACTIONS (13)
  - DISORIENTATION [None]
  - SOMNOLENCE [None]
  - FLUSHING [None]
  - HEADACHE [None]
  - DIZZINESS [None]
  - BALANCE DISORDER [None]
  - VISION BLURRED [None]
  - FATIGUE [None]
  - ASTHENIA [None]
  - CHILLS [None]
  - DRY MOUTH [None]
  - DYSGEUSIA [None]
  - HYPERHIDROSIS [None]
